FAERS Safety Report 20554309 (Version 1)
Quarter: 2022Q1

REPORT INFORMATION
  Report Type: Spontaneous
  Country: JP (occurrence: JP)
  Receive Date: 20220304
  Receipt Date: 20220304
  Transmission Date: 20220423
  Serious: Yes (Other)
  Sender: FDA-Public Use
  Company Number: JP-ELI_LILLY_AND_COMPANY-JP201907005235

PATIENT
  Age: 70 Year
  Sex: Female
  Weight: 38 kg

DRUGS (20)
  1. ADCIRCA [Suspect]
     Active Substance: TADALAFIL
     Indication: Pulmonary arterial hypertension
     Dosage: 40 MG, DAILY
     Route: 048
     Dates: start: 20170518, end: 20170615
  2. ADCIRCA [Suspect]
     Active Substance: TADALAFIL
     Dosage: 20 MG, DAILY
     Route: 048
     Dates: start: 20171011, end: 20180108
  3. ADCIRCA [Suspect]
     Active Substance: TADALAFIL
     Dosage: 20 MG, DAILY
     Route: 048
     Dates: start: 20180407, end: 20180711
  4. UPTRAVI [Suspect]
     Active Substance: SELEXIPAG
     Indication: Pulmonary arterial hypertension
     Dosage: 0.2 MG, DAILY
     Route: 048
     Dates: start: 20170612, end: 20170628
  5. UPTRAVI [Suspect]
     Active Substance: SELEXIPAG
     Dosage: 0.2 MG, DAILY
     Route: 048
     Dates: start: 20181208
  6. UPTRAVI [Suspect]
     Active Substance: SELEXIPAG
     Dosage: 0.4 MG, DAILY
     Route: 048
  7. UPTRAVI [Suspect]
     Active Substance: SELEXIPAG
     Dosage: 0.2 MG, DAILY
     Route: 048
  8. OPSUMIT [Suspect]
     Active Substance: MACITENTAN
     Indication: Pulmonary arterial hypertension
     Dosage: 10 MG, DAILY
     Route: 048
     Dates: start: 20170518, end: 20170605
  9. OPSUMIT [Suspect]
     Active Substance: MACITENTAN
     Dosage: 10 MG, DAILY
     Route: 048
     Dates: start: 20170804
  10. OPSUMIT [Suspect]
     Active Substance: MACITENTAN
     Dosage: 10 MG, DAILY
     Route: 048
     Dates: start: 20171011, end: 20180108
  11. OPSUMIT [Suspect]
     Active Substance: MACITENTAN
     Dosage: 10 MG, DAILY
     Route: 048
  12. MAGNESIUM OXIDE [Concomitant]
     Active Substance: MAGNESIUM OXIDE
     Indication: Constipation
     Dosage: 990 MG, UNKNOWN
     Dates: start: 20170615, end: 20170628
  13. POTASSIUM ASPARTATE [Concomitant]
     Active Substance: POTASSIUM ASPARTATE
     Indication: Hypokalaemia
     Dosage: 900 MG, UNKNOWN
     Route: 065
     Dates: end: 20170628
  14. BERIZYM [CELLULASE;DIASTASE;LIPASE;PANCREATIN [Concomitant]
     Indication: Chronic gastritis
     Dosage: 1 G, UNKNOWN
     Route: 065
     Dates: end: 20170628
  15. ESTAZOLAM [Concomitant]
     Active Substance: ESTAZOLAM
     Indication: Insomnia
     Dosage: 2 MG, UNKNOWN
     Route: 065
     Dates: start: 20170615, end: 20170628
  16. LYRICA [Concomitant]
     Active Substance: PREGABALIN
     Indication: Necrosis
     Dosage: 25 MG, UNKNOWN
     Route: 065
     Dates: end: 20170628
  17. NAUZELIN [Concomitant]
     Active Substance: DOMPERIDONE
     Indication: Chronic gastritis
     Dosage: 30 MG, UNKNOWN
     Route: 065
     Dates: start: 20170614, end: 20170628
  18. LANSOPRAZOLE [Concomitant]
     Active Substance: LANSOPRAZOLE
     Indication: Product used for unknown indication
     Dosage: UNK, UNKNOWN
     Route: 065
  19. SENNOSIDES NOS [Concomitant]
     Indication: Constipation
     Dosage: UNK, UNKNOWN
     Route: 065
  20. LINACLOTIDE [Concomitant]
     Active Substance: LINACLOTIDE
     Indication: Constipation
     Dosage: UNK, UNKNOWN
     Route: 065

REACTIONS (6)
  - Femoral neck fracture [Recovering/Resolving]
  - Mouth haemorrhage [Recovered/Resolved]
  - Nausea [Recovered/Resolved]
  - Chronic gastritis [Recovered/Resolved]
  - Iron deficiency anaemia [Recovering/Resolving]
  - Dizziness [Recovered/Resolved]

NARRATIVE: CASE EVENT DATE: 20170614
